FAERS Safety Report 10569543 (Version 1)
Quarter: 2014Q4

REPORT INFORMATION
  Report Type: Spontaneous
  Country: US (occurrence: US)
  Receive Date: 20141106
  Receipt Date: 20141106
  Transmission Date: 20150529
  Serious: No
  Sender: FDA-Public Use
  Company Number: US-LUNDBECK-DKLU1104564

PATIENT
  Sex: Male

DRUGS (1)
  1. SABRIL [Suspect]
     Active Substance: VIGABATRIN
     Indication: TUBEROUS SCLEROSIS
     Route: 048
     Dates: start: 20131204, end: 20141006

REACTIONS (2)
  - Drug ineffective [Unknown]
  - Adverse drug reaction [Unknown]
